FAERS Safety Report 10277216 (Version 1)
Quarter: 2014Q3

REPORT INFORMATION
  Report Type: Spontaneous
  Country: BE (occurrence: BE)
  Receive Date: 20140703
  Receipt Date: 20140703
  Transmission Date: 20150326
  Serious: Yes (Death)
  Sender: FDA-Public Use
  Company Number: BE-ELI_LILLY_AND_COMPANY-BE201407000526

PATIENT
  Sex: Male

DRUGS (5)
  1. DEXAMETHASON                       /00016001/ [Concomitant]
     Active Substance: DEXAMETHASONE
  2. FOLIC ACID. [Concomitant]
     Active Substance: FOLIC ACID
  3. ALIMTA [Suspect]
     Active Substance: PEMETREXED DISODIUM
     Indication: NON-SMALL CELL LUNG CANCER
     Dosage: 500 MG/M2, UNKNOWN
     Route: 065
  4. VITAMIN B12 [Concomitant]
     Active Substance: CYANOCOBALAMIN
  5. CARBOPLATINE [Suspect]
     Active Substance: CARBOPLATIN
     Indication: NON-SMALL CELL LUNG CANCER
     Route: 065

REACTIONS (2)
  - Febrile neutropenia [Fatal]
  - Off label use [Unknown]
